FAERS Safety Report 21862653 (Version 5)
Quarter: 2023Q2

REPORT INFORMATION
  Report Type: Report from Study
  Country: US (occurrence: US)
  Receive Date: 20230114
  Receipt Date: 20230614
  Transmission Date: 20230722
  Serious: Yes (Other)
  Sender: FDA-Public Use
  Company Number: US-002147023-NVSC2023US008640

PATIENT
  Sex: Female

DRUGS (1)
  1. ENTRESTO [Suspect]
     Active Substance: SACUBITRIL\VALSARTAN
     Indication: Product used for unknown indication
     Dosage: 1 DOSAGE FORM, BID
     Route: 065

REACTIONS (5)
  - Atrial fibrillation [Recovering/Resolving]
  - Stress [Not Recovered/Not Resolved]
  - Blood potassium decreased [Unknown]
  - Temperature intolerance [Not Recovered/Not Resolved]
  - Flushing [Unknown]
